FAERS Safety Report 12377365 (Version 1)
Quarter: 2016Q2

REPORT INFORMATION
  Report Type: Report from Study
  Country: US (occurrence: US)
  Receive Date: 20160517
  Receipt Date: 20160517
  Transmission Date: 20160815
  Serious: No
  Sender: FDA-Public Use
  Company Number: US-MALLINCKRODT-T201505327

PATIENT
  Age: 51 Year
  Sex: Male

DRUGS (3)
  1. REPOSITORY CORTICOTROPIN INJECTION [Suspect]
     Active Substance: CORTICOTROPIN
     Dosage: 80 UNITS DAILY FOR 5 DAYS
     Route: 058
     Dates: start: 201601, end: 201601
  2. REPOSITORY CORTICOTROPIN INJECTION [Suspect]
     Active Substance: CORTICOTROPIN
     Dosage: 80 UNITS DAILY FOR 5 DAYS
     Route: 058
     Dates: start: 20151215, end: 20151221
  3. REPOSITORY CORTICOTROPIN INJECTION [Suspect]
     Active Substance: CORTICOTROPIN
     Indication: NEUROSARCOIDOSIS
     Dosage: 80 UNITS DAILY FOR 5 DAYS
     Route: 058
     Dates: start: 20151107, end: 20151111

REACTIONS (3)
  - Burning sensation [Not Recovered/Not Resolved]
  - Inappropriate schedule of drug administration [Unknown]
  - Blood glucose increased [Not Recovered/Not Resolved]

NARRATIVE: CASE EVENT DATE: 20151114
